FAERS Safety Report 16037315 (Version 2)
Quarter: 2019Q1

REPORT INFORMATION
  Report Type: Spontaneous
  Country: US (occurrence: US)
  Receive Date: 20190305
  Receipt Date: 20190311
  Transmission Date: 20190418
  Serious: Yes (Other)
  Sender: FDA-Public Use
  Company Number: US-ASTRAZENECA-2018SF33304

PATIENT
  Sex: Male
  Weight: 95.3 kg

DRUGS (22)
  1. OSCAL [Concomitant]
     Active Substance: CALCIUM CARBONATE
  2. ULTRAM [Concomitant]
     Active Substance: TRAMADOL HYDROCHLORIDE
  3. TRAMADOL. [Concomitant]
     Active Substance: TRAMADOL
  4. PREVACID [Suspect]
     Active Substance: LANSOPRAZOLE
     Route: 065
     Dates: start: 200608, end: 200608
  5. PROTONIX [Suspect]
     Active Substance: PANTOPRAZOLE SODIUM
     Route: 065
     Dates: start: 200608, end: 200608
  6. INDERAL [Concomitant]
     Active Substance: PROPRANOLOL HYDROCHLORIDE
  7. ZANTAC [Concomitant]
     Active Substance: RANITIDINE HYDROCHLORIDE
  8. CLINDAMYCIN. [Concomitant]
     Active Substance: CLINDAMYCIN
  9. LUBRIDERM [Concomitant]
     Active Substance: AVOBENZONE\HOMOSALATE\OCTISALATE\OCTOCRYLENE\OXYBENZONE
  10. FUROSEMIDE. [Concomitant]
     Active Substance: FUROSEMIDE
  11. LASIX [Concomitant]
     Active Substance: FUROSEMIDE
  12. IBUPROFEN. [Concomitant]
     Active Substance: IBUPROFEN
  13. RANITIDINE. [Concomitant]
     Active Substance: RANITIDINE
  14. RANITIDINE. [Concomitant]
     Active Substance: RANITIDINE
  15. AMARILLO [Concomitant]
  16. ALDACTONE [Concomitant]
     Active Substance: SPIRONOLACTONE
  17. SPIRONOLACTONE. [Concomitant]
     Active Substance: SPIRONOLACTONE
  18. PROPRANOLOL [Concomitant]
     Active Substance: PROPRANOLOL HYDROCHLORIDE
  19. PRILOSEC [Suspect]
     Active Substance: OMEPRAZOLE MAGNESIUM
     Route: 048
     Dates: start: 200608, end: 200608
  20. FUROSEMIDE. [Concomitant]
     Active Substance: FUROSEMIDE
  21. CALCIUM CARBONATE. [Concomitant]
     Active Substance: CALCIUM CARBONATE
  22. DARVOCET [Concomitant]
     Active Substance: ACETAMINOPHEN\PROPOXYPHENE HYDROCHLORIDE

REACTIONS (3)
  - Renal injury [Unknown]
  - Acute kidney injury [Unknown]
  - Chronic kidney disease [Unknown]
